FAERS Safety Report 6192758-9 (Version None)
Quarter: 2009Q2

REPORT INFORMATION
  Report Type: 
  Country: None (occurrence: None)
  Receive Date: 20090518
  Receipt Date: 20090514
  Transmission Date: 20091009
  Serious: Yes (Hospitalization)
  Sender: FDA-Public Use
  Company Number: US-BRISTOL-MYERS SQUIBB COMPANY-14542914

PATIENT
  Age: 52 Year
  Sex: Female
  Weight: 60 kg

DRUGS (4)
  1. TAXOL [Suspect]
     Indication: SALIVARY GLAND CANCER
     Dates: start: 20090217
  2. CETUXIMAB [Suspect]
     Indication: SALIVARY GLAND CANCER
     Dosage: 400MG/M2X1 ALSO GIVEN.
     Route: 042
     Dates: start: 20090413, end: 20090413
  3. CARBOPLATIN [Suspect]
     Indication: SALIVARY GLAND CANCER
     Dosage: 1DF=AUC
     Dates: start: 20090217
  4. CISPLATIN [Suspect]
     Indication: SALIVARY GLAND CANCER
     Route: 042
     Dates: start: 20090512, end: 20090512

REACTIONS (6)
  - DEHYDRATION [None]
  - DYSPNOEA [None]
  - HYPOTENSION [None]
  - MUCOSAL INFLAMMATION [None]
  - ORAL PAIN [None]
  - TACHYCARDIA [None]
